FAERS Safety Report 9337253 (Version 2)
Quarter: 2013Q3

REPORT INFORMATION
  Report Type: Spontaneous
  Country: US (occurrence: US)
  Receive Date: 20130607
  Receipt Date: 20130904
  Transmission Date: 20140515
  Serious: Yes (Death, Congenital Anomaly, Other)
  Sender: FDA-Public Use
  Company Number: US-PFIZER INC-2012034295

PATIENT
  Sex: Male

DRUGS (12)
  1. ZOLOFT [Suspect]
     Dosage: UNK
     Route: 064
     Dates: start: 199211
  2. ZOLOFT [Suspect]
     Dosage: OFF AND ON, UNK
     Route: 064
     Dates: start: 1995
  3. SERTRALINE HCL [Suspect]
     Dosage: UNK
     Route: 064
     Dates: start: 199211
  4. SERTRALINE HCL [Suspect]
     Dosage: OFF AND ON, UNK
     Route: 064
     Dates: start: 1995
  5. BUSPAR [Concomitant]
     Dosage: UNK
     Route: 064
  6. XANAX [Concomitant]
     Dosage: UNK
     Route: 064
  7. AMBIEN [Concomitant]
     Dosage: UNK
     Route: 064
  8. LORTAB [Concomitant]
     Dosage: UNK
     Route: 064
  9. ASPRIN [Concomitant]
     Dosage: UNK
     Route: 064
  10. MAXZIDE [Concomitant]
     Dosage: UNK
     Route: 064
  11. BENADRYL [Concomitant]
     Dosage: UNK
     Route: 064
  12. SELDANE [Concomitant]
     Dosage: UNK
     Route: 064

REACTIONS (2)
  - Maternal exposure during pregnancy [Fatal]
  - Hypoplastic left heart syndrome [Fatal]
